FAERS Safety Report 8432399-3 (Version None)
Quarter: 2012Q2

REPORT INFORMATION
  Report Type: 
  Country: None (occurrence: None)
  Receive Date: 20120613
  Receipt Date: 20120423
  Transmission Date: 20120825
  Serious: Yes (Other)
  Sender: FDA-Public Use
  Company Number: JP-GENZYME-FLUD-1001468

PATIENT
  Sex: Male

DRUGS (9)
  1. CYCLOSPORINE [Concomitant]
     Indication: PROPHYLAXIS AGAINST GRAFT VERSUS HOST DISEASE
     Dosage: 22 DAYS AFTER MIBG THERAPY
     Route: 065
  2. FLUDARA [Suspect]
     Indication: NEUROBLASTOMA
  3. IOBENGUANE SULFATE I 131 [Concomitant]
     Indication: NEUROBLASTOMA
     Dosage: 16 MCI/KG
     Route: 065
  4. CYTARABINE [Concomitant]
     Indication: NEUROBLASTOMA
     Dosage: 8 G/M2, UNK; 22 DAYS AFTER MIBG THERAPY
     Route: 065
  5. CYCLOPHOSPHAMIDE [Concomitant]
     Indication: BONE MARROW CONDITIONING REGIMEN
  6. CYCLOPHOSPHAMIDE [Concomitant]
     Indication: NEUROBLASTOMA
     Dosage: 120 MG/KG, UNK;  22 DAYS AFTER MIBG THERAPY
     Route: 065
  7. FLUDARA [Suspect]
     Indication: BONE MARROW CONDITIONING REGIMEN
     Dosage: 120 MG/M2, QD; STARTED 22 DAYS AFTER MIBG THERAPY
     Route: 065
  8. CYTARABINE [Concomitant]
     Indication: BONE MARROW CONDITIONING REGIMEN
  9. METHOTREXATE [Concomitant]
     Indication: PROPHYLAXIS AGAINST GRAFT VERSUS HOST DISEASE
     Dosage: 22 DAYS AFTER MIBG THERAPY
     Route: 065

REACTIONS (3)
  - ESCHERICHIA SEPSIS [None]
  - ENGRAFTMENT SYNDROME [None]
  - INTERSTITIAL LUNG DISEASE [None]
